FAERS Safety Report 23466577 (Version 8)
Quarter: 2024Q2

REPORT INFORMATION
  Report Type: Report from Study
  Country: MX (occurrence: MX)
  Receive Date: 20240201
  Receipt Date: 20240507
  Transmission Date: 20240716
  Serious: Yes (Hospitalization, Other)
  Sender: FDA-Public Use
  Company Number: MX-AstraZeneca-2023A259822

PATIENT
  Age: 562 Day
  Sex: Female
  Weight: 10.4 kg

DRUGS (9)
  1. SYNAGIS [Suspect]
     Active Substance: PALIVIZUMAB
     Indication: Respiratory syncytial virus infection
     Dosage: 1.3 ML MONTHLY
     Route: 030
     Dates: start: 20231013, end: 20231013
  2. SYNAGIS [Suspect]
     Active Substance: PALIVIZUMAB
     Dosage: 1.4 ML MONTHLY
     Route: 030
     Dates: start: 20231108, end: 20231108
  3. SYNAGIS [Suspect]
     Active Substance: PALIVIZUMAB
     Route: 030
     Dates: start: 20231205, end: 20231205
  4. SYNAGIS [Suspect]
     Active Substance: PALIVIZUMAB
     Route: 030
     Dates: start: 20240123, end: 20240123
  5. SYNAGIS [Suspect]
     Active Substance: PALIVIZUMAB
     Dosage: MONTHLY
     Route: 030
     Dates: start: 20240220, end: 20240220
  6. PREDNISOLONE [Concomitant]
     Active Substance: PREDNISOLONE
     Indication: Product used for unknown indication
  7. AMBROXOL [Concomitant]
     Active Substance: AMBROXOL
     Indication: Product used for unknown indication
  8. CEPHALEXIN [Concomitant]
     Active Substance: CEPHALEXIN
     Indication: Product used for unknown indication
  9. LARIMOT [Concomitant]
     Indication: Product used for unknown indication

REACTIONS (24)
  - Oral herpes [Recovered/Resolved]
  - Gait disturbance [Recovered/Resolved]
  - Seizure [Recovered/Resolved]
  - Pyrexia [Recovered/Resolved]
  - Streptococcal infection [Recovered/Resolved]
  - Crying [Recovered/Resolved]
  - Irritability [Recovered/Resolved]
  - Pain in extremity [Recovered/Resolved]
  - Oropharyngeal pain [Recovered/Resolved]
  - Secretion discharge [Recovered/Resolved]
  - Weight decreased [Recovered/Resolved]
  - Rhinitis allergic [Recovered/Resolved]
  - Viral pharyngitis [Recovered/Resolved]
  - Injection site pain [Recovered/Resolved]
  - Pharyngitis [Recovered/Resolved]
  - Bacterial infection [Recovered/Resolved]
  - Cough [Recovered/Resolved]
  - Hyperaesthesia [Recovered/Resolved]
  - Incorrect dose administered [Unknown]
  - White blood cell count increased [Recovered/Resolved]
  - Hypophagia [Recovered/Resolved]
  - Skin injury [Recovered/Resolved]
  - Pharyngitis [Unknown]
  - Influenza [Recovered/Resolved]

NARRATIVE: CASE EVENT DATE: 20231108
